FAERS Safety Report 25906707 (Version 1)
Quarter: 2025Q4

REPORT INFORMATION
  Report Type: Spontaneous
  Country: US (occurrence: US)
  Receive Date: 20251010
  Receipt Date: 20251010
  Transmission Date: 20260117
  Serious: Yes (Other)
  Sender: UCB
  Company Number: US-UCBSA-2025063506

PATIENT
  Sex: Female

DRUGS (3)
  1. LEVETIRACETAM [Suspect]
     Active Substance: LEVETIRACETAM
     Indication: Myoclonic epilepsy
     Dosage: UNK
  2. LEVETIRACETAM [Suspect]
     Active Substance: LEVETIRACETAM
     Indication: Off label use
  3. VALPROATE [Concomitant]
     Active Substance: VALPROIC ACID
     Indication: Myoclonic epilepsy
     Dosage: EXTENDED-RELEASE

REACTIONS (3)
  - Myoclonic epilepsy [Unknown]
  - Off label use [Unknown]
  - Drug ineffective for unapproved indication [Unknown]
